FAERS Safety Report 4445421-6 (Version None)
Quarter: 2004Q3

REPORT INFORMATION
  Report Type: 
  Country: None (occurrence: None)
  Receive Date: 20040802
  Receipt Date: 20040510
  Transmission Date: 20050211
  Serious: No
  Sender: FDA-Public Use
  Company Number: 2004-116219-NL

PATIENT
  Age: 29 Year
  Sex: Female
  Weight: 75 kg

DRUGS (2)
  1. NUVARING [Suspect]
     Indication: CONTRACEPTION
     Dosage: DF DAILY VAGINAL
     Route: 067
     Dates: start: 20040101
  2. MULTI-VITAMINS [Concomitant]

REACTIONS (5)
  - ABNORMAL DREAMS [None]
  - INSOMNIA [None]
  - METRORRHAGIA [None]
  - OLIGOMENORRHOEA [None]
  - SLEEP WALKING [None]
